FAERS Safety Report 8401592 (Version 4)
Quarter: 2013Q4

REPORT INFORMATION
  Report Type: Spontaneous
  Country: JP (occurrence: JP)
  Receive Date: 20120210
  Receipt Date: 20131106
  Transmission Date: 20140711
  Serious: Yes (Hospitalization)
  Sender: FDA-Public Use
  Company Number: JP-009507513-1202USA01432

PATIENT
  Age: 75 Year
  Sex: 0

DRUGS (4)
  1. JANUVIA [Suspect]
     Indication: DIABETES MELLITUS
     Dosage: 50 MG, QD
     Route: 048
  2. PLAVIX [Concomitant]
     Route: 048
  3. PLAVIX [Concomitant]
     Dosage: DAILY DOSAGE UNKNOWN
  4. JANUVIA TABLETS 50MG [Suspect]
     Indication: DIABETES MELLITUS
     Route: 048

REACTIONS (1)
  - Interstitial lung disease [Unknown]
